FAERS Safety Report 8289370-4 (Version None)
Quarter: 2012Q2

REPORT INFORMATION
  Report Type: 
  Country: None (occurrence: None)
  Receive Date: 20120417
  Receipt Date: 20120403
  Transmission Date: 20120825
  Serious: Yes (Other)
  Sender: FDA-Public Use
  Company Number: JP-RANBAXY-2011RR-42970

PATIENT
  Age: 15 Year
  Sex: Female

DRUGS (2)
  1. ZOLPIDEM [Suspect]
     Indication: INSOMNIA
     Dosage: 5 MG, PRN AT BEDTIME
     Route: 065
  2. FLUVOXAMINE MALEATE [Suspect]
     Indication: DEPRESSION
     Dosage: 25 MG, UNK
     Route: 065

REACTIONS (3)
  - DRUG INTERACTION [None]
  - AMNESIA [None]
  - SOMNAMBULISM [None]
